FAERS Safety Report 19744126 (Version 1)
Quarter: 2021Q3

REPORT INFORMATION
  Report Type: Report from Study
  Country: None (occurrence: US)
  Receive Date: 20210824
  Receipt Date: 20210824
  Transmission Date: 20211014
  Serious: Yes (Other)
  Sender: FDA-Public Use
  Company Number: US-ABBVIE-21K-163-3794093-00

PATIENT
  Sex: Female

DRUGS (1)
  1. HUMIRA [Suspect]
     Active Substance: ADALIMUMAB
     Indication: RHEUMATOID ARTHRITIS
     Dosage: CITRATE FREE
     Route: 058
     Dates: start: 20210122

REACTIONS (9)
  - Arthritis [Unknown]
  - Musculoskeletal stiffness [Unknown]
  - Musculoskeletal stiffness [Recovering/Resolving]
  - Road traffic accident [Recovering/Resolving]
  - Hand deformity [Recovering/Resolving]
  - Finger deformity [Unknown]
  - Periodontal disease [Recovering/Resolving]
  - Headache [Recovered/Resolved]
  - Neck pain [Recovering/Resolving]

NARRATIVE: CASE EVENT DATE: 2021
